FAERS Safety Report 6397342-X (Version None)
Quarter: 2009Q4

REPORT INFORMATION
  Report Type: 
  Country: None (occurrence: None)
  Receive Date: 20091012
  Receipt Date: 20091005
  Transmission Date: 20100525
  Serious: Yes (Other)
  Sender: FDA-Public Use
  Company Number: ZA-JNJFOC-20090903523

PATIENT
  Sex: Female
  Weight: 64 kg

DRUGS (3)
  1. CONCERTA [Suspect]
     Indication: ATTENTION DEFICIT/HYPERACTIVITY DISORDER
     Route: 048
     Dates: start: 20090905, end: 20091003
  2. GLUCOPHAGE [Concomitant]
     Indication: DIABETES MELLITUS
     Route: 048
  3. CYMBALTA [Concomitant]
     Indication: ANXIETY
     Route: 048

REACTIONS (4)
  - JAW DISORDER [None]
  - MUSCLE TIGHTNESS [None]
  - SLEEP DISORDER [None]
  - TOURETTE'S DISORDER [None]
